FAERS Safety Report 6960180-0 (Version None)
Quarter: 2010Q3

REPORT INFORMATION
  Report Type: 
  Country: None (occurrence: None)
  Receive Date: 20100901
  Receipt Date: 20100823
  Transmission Date: 20110219
  Serious: Yes (Other)
  Sender: FDA-Public Use
  Company Number: US-JNJCH-2010019337

PATIENT
  Age: 61 Year
  Sex: Male
  Weight: 90.7 kg

DRUGS (5)
  1. ROGAINE [Suspect]
     Indication: ALOPECIA
     Dosage: FREQ:USED FOR A YEAR AND A HALF
     Route: 061
  2. ASPIRIN [Concomitant]
     Indication: PRODUCT USED FOR UNKNOWN INDICATION
     Dosage: TEXT:80 MG
     Route: 065
  3. METOPROLOL TARTRATE [Concomitant]
     Indication: PRODUCT USED FOR UNKNOWN INDICATION
     Dosage: TEXT:50 MG / 2X DAILY
     Route: 065
  4. DIOVANE [Concomitant]
     Indication: PRODUCT USED FOR UNKNOWN INDICATION
     Dosage: TEXT:80 MG
     Route: 065
  5. PRAVASTATIN [Concomitant]
     Indication: PRODUCT USED FOR UNKNOWN INDICATION
     Dosage: TEXT:20 MG
     Route: 065

REACTIONS (2)
  - FOLLICLE CENTRE LYMPHOMA, FOLLICULAR GRADE I, II, III [None]
  - LYMPHADENOPATHY [None]
